FAERS Safety Report 25279155 (Version 2)
Quarter: 2025Q2

REPORT INFORMATION
  Report Type: Report from Study
  Country: US (occurrence: US)
  Receive Date: 20250507
  Receipt Date: 20250512
  Transmission Date: 20250716
  Serious: Yes (Hospitalization)
  Sender: MERCK SHARP & DOHME LLC
  Company Number: US-009507513-2282838

PATIENT
  Sex: Female

DRUGS (8)
  1. METFORMIN HYDROCHLORIDE\SITAGLIPTIN PHOSPHATE [Suspect]
     Active Substance: METFORMIN HYDROCHLORIDE\SITAGLIPTIN PHOSPHATE
     Indication: Blood glucose increased
     Dosage: 1 TABLET TWICE DAILY; STRENGTH: 50-1000 MG
     Route: 048
  2. METFORMIN HYDROCHLORIDE\SITAGLIPTIN PHOSPHATE [Suspect]
     Active Substance: METFORMIN HYDROCHLORIDE\SITAGLIPTIN PHOSPHATE
     Indication: Blood glucose increased
     Dosage: STRENGTH: 50-1000 MG
     Route: 048
     Dates: start: 2015
  3. TEMAZEPAM [Suspect]
     Active Substance: TEMAZEPAM
     Indication: Sleep disorder
     Dosage: 15MG ONCE AT NIGHT
  4. AMLODIPINE [Concomitant]
     Active Substance: AMLODIPINE BESYLATE
  5. LOSARTAN [Concomitant]
     Active Substance: LOSARTAN
  6. OXYBUTYNIN [Concomitant]
     Active Substance: OXYBUTYNIN
  7. CYCLOBENZAPRINE [Concomitant]
     Active Substance: CYCLOBENZAPRINE
  8. METFORMIN [Suspect]
     Active Substance: METFORMIN HYDROCHLORIDE
     Indication: Blood glucose increased

REACTIONS (8)
  - Cerebrovascular accident [Not Recovered/Not Resolved]
  - Product prescribing issue [Unknown]
  - Incorrect dose administered [Unknown]
  - Product packaging quantity issue [Unknown]
  - Product use issue [Unknown]
  - Sleep disorder [Not Recovered/Not Resolved]
  - Fatigue [Not Recovered/Not Resolved]
  - Dizziness [Not Recovered/Not Resolved]

NARRATIVE: CASE EVENT DATE: 20150101
